FAERS Safety Report 8920017 (Version 1)
Quarter: 2012Q4

REPORT INFORMATION
  Report Type: 
  Country: US (occurrence: US)
  Receive Date: 20121121
  Receipt Date: 20121121
  Transmission Date: 20130627
  Serious: No
  Sender: FDA-Public Use
  Company Number: US-009507513-1211USA007708

PATIENT
  Age: 49 Year
  Sex: Male
  Weight: 86.17 kg

DRUGS (2)
  1. JANUVIA [Suspect]
     Indication: TYPE 2 DIABETES MELLITUS
     Dosage: 100 mg, qd
     Route: 048
     Dates: start: 20121117
  2. METFORMIN [Concomitant]

REACTIONS (2)
  - Drug ineffective [Unknown]
  - Nosophobia [Unknown]
